FAERS Safety Report 15179114 (Version 3)
Quarter: 2019Q2

REPORT INFORMATION
  Report Type: Spontaneous
  Country: US (occurrence: US)
  Receive Date: 20180723
  Receipt Date: 20190405
  Transmission Date: 20190711
  Serious: Yes (Hospitalization, Other)
  Sender: FDA-Public Use
  Company Number: US-ASTRAZENECA-2018SE92184

PATIENT
  Age: 580 Month
  Sex: Male

DRUGS (17)
  1. NEXIUM [Suspect]
     Active Substance: ESOMEPRAZOLE MAGNESIUM
     Indication: DYSPEPSIA
     Dosage: 40.0MG UNKNOWN
     Route: 048
     Dates: start: 2005, end: 2010
  2. VANCOMYCIN [Concomitant]
     Active Substance: VANCOMYCIN
  3. ATENOLOL. [Concomitant]
     Active Substance: ATENOLOL
  4. OMEPRAZOLE. [Suspect]
     Active Substance: OMEPRAZOLE
     Indication: DYSPEPSIA
     Dosage: GENERIC 40.0MG UNKNOWN
     Route: 065
     Dates: start: 201102, end: 201608
  5. HYDRAZINE [Concomitant]
     Active Substance: HYDRAZINE SULFATE
     Indication: BLOOD PRESSURE ABNORMAL
  6. LISINOPRIL. [Concomitant]
     Active Substance: LISINOPRIL
     Indication: BLOOD PRESSURE ABNORMAL
  7. METOPROLOL. [Concomitant]
     Active Substance: METOPROLOL
     Indication: BLOOD PRESSURE ABNORMAL
  8. DULOXETINE. [Concomitant]
     Active Substance: DULOXETINE
  9. NEXIUM [Suspect]
     Active Substance: ESOMEPRAZOLE MAGNESIUM
     Indication: DYSPEPSIA
     Dosage: 40.0MG UNKNOWN
     Route: 048
     Dates: start: 200501
  10. AMLODIPINE [Concomitant]
     Active Substance: AMLODIPINE BESYLATE
     Indication: BLOOD PRESSURE MEASUREMENT
  11. GLIPIZIDE. [Concomitant]
     Active Substance: GLIPIZIDE
  12. GABAPENTIN. [Concomitant]
     Active Substance: GABAPENTIN
  13. OXYCODONE [Concomitant]
     Active Substance: OXYCODONE
  14. SEVELAMER [Concomitant]
     Active Substance: SEVELAMER
  15. ATORVASTATIN [Concomitant]
     Active Substance: ATORVASTATIN
     Indication: BLOOD CHOLESTEROL
  16. ASPIRIN. [Concomitant]
     Active Substance: ASPIRIN
  17. GENTAMICIN. [Concomitant]
     Active Substance: GENTAMICIN

REACTIONS (3)
  - Renal failure [Unknown]
  - Chronic kidney disease [Not Recovered/Not Resolved]
  - End stage renal disease [Not Recovered/Not Resolved]

NARRATIVE: CASE EVENT DATE: 201404
